FAERS Safety Report 10053330 (Version 2)
Quarter: 2014Q2

REPORT INFORMATION
  Report Type: Spontaneous
  Country: IT (occurrence: IT)
  Receive Date: 20140402
  Receipt Date: 20140501
  Transmission Date: 20141212
  Serious: Yes (Hospitalization)
  Sender: FDA-Public Use
  Company Number: PHHY2014IT038387

PATIENT
  Age: 75 Year
  Sex: Female

DRUGS (5)
  1. TOLEP [Suspect]
     Dosage: UNK UKN, UNK
     Dates: start: 20130720, end: 20130723
  2. GABAPENTIN [Suspect]
     Dosage: UNK UKN, UNK
     Dates: start: 20130720, end: 20130723
  3. GABAPENTIN [Suspect]
     Dosage: UNK (DOSAGE WAS INCREASED)
     Dates: start: 20130720, end: 20130723
  4. TARGIN [Suspect]
     Dosage: 5 MG, BID
     Route: 048
     Dates: start: 20130720, end: 20130723
  5. CYMBALTA [Suspect]
     Dosage: UNK UKN, UNK
     Dates: start: 20130720, end: 20130723

REACTIONS (3)
  - Dysarthria [Unknown]
  - Sopor [Unknown]
  - Overdose [Unknown]
